FAERS Safety Report 8009154-1 (Version None)
Quarter: 2011Q4

REPORT INFORMATION
  Report Type: 
  Country: None (occurrence: None)
  Receive Date: 20111227
  Receipt Date: 20111219
  Transmission Date: 20120403
  Serious: Yes (Death, Other)
  Sender: FDA-Public Use
  Company Number: PHHY2011JP20581

PATIENT
  Sex: Male

DRUGS (19)
  1. FAMOTIDINE [Concomitant]
     Dosage: 20 MG, UNK
     Route: 048
     Dates: start: 20100628, end: 20100911
  2. PURSENNID [Concomitant]
     Route: 048
  3. MEDICON (DEXTROMETHORPHAN HYDROBROMIDE) [Concomitant]
     Dosage: 50 MG, UNK
     Route: 048
     Dates: start: 20091014, end: 20100218
  4. TAMSULOSIN HCL [Concomitant]
     Dosage: 0.2 MG, UNK
     Route: 048
     Dates: start: 20091014, end: 20100911
  5. CEFAZOLIN SODIUM [Concomitant]
     Dosage: 3 G, UNK
     Route: 048
     Dates: start: 20091030, end: 20100911
  6. TORSEMIDE [Concomitant]
     Dosage: 4 MG, UNK
     Route: 048
     Dates: start: 20091026, end: 20100628
  7. UNIPHYL [Concomitant]
     Dosage: 200 MG, UNK
     Route: 048
     Dates: start: 20091026, end: 20100911
  8. ALDACTONE [Concomitant]
     Dosage: 125 MG, UNK
     Route: 048
     Dates: start: 20100628, end: 20100911
  9. ALLOPURINOL [Concomitant]
     Dosage: 200 MG, UNK
     Route: 048
     Dates: start: 20100628, end: 20100911
  10. ASPIRIN [Concomitant]
     Route: 048
     Dates: start: 20091026, end: 20100628
  11. LASIX [Concomitant]
     Dosage: 80 MG, UNK
     Route: 048
     Dates: start: 20100628, end: 20100911
  12. DECADRON [Concomitant]
     Dosage: 0.5 MG, UNK
     Route: 048
     Dates: start: 20100901, end: 20100911
  13. AFINITOR [Suspect]
     Indication: METASTATIC RENAL CELL CARCINOMA
     Dosage: 10 MG, DAILY
     Route: 048
     Dates: start: 20100624
  14. ALLEGRA [Concomitant]
     Dosage: 120 MG, UNK
     Route: 048
     Dates: start: 20091014, end: 20100721
  15. MUCODYNE [Concomitant]
     Dosage: 1500 MG, UNK
     Route: 048
     Dates: start: 20091014, end: 20100906
  16. HERBESSOR R [Concomitant]
     Dosage: 200 MG, UNK
     Route: 048
     Dates: start: 20091026, end: 20100911
  17. MUCOSOLVAN [Concomitant]
     Dosage: 45 MG, UNK
     Route: 048
     Dates: start: 20100907, end: 20100911
  18. RESPLEN [Concomitant]
     Dosage: 60 MG, UNK
     Route: 048
     Dates: start: 20100219, end: 20100721
  19. AFINITOR [Suspect]
     Dosage: 5 MG, DAILY
     Route: 048
     Dates: start: 20100708, end: 20100809

REACTIONS (2)
  - INTERSTITIAL LUNG DISEASE [None]
  - DEATH [None]
